FAERS Safety Report 10447176 (Version 1)
Quarter: 2014Q3

REPORT INFORMATION
  Report Type: Spontaneous
  Country: US (occurrence: None)
  Receive Date: 20140910
  Receipt Date: 20140910
  Transmission Date: 20150326
  Serious: Yes (Other)
  Sender: FDA-Public Use
  Company Number: None

PATIENT
  Age: 45 Year
  Sex: Female
  Weight: 95.8 kg

DRUGS (32)
  1. LORTADINE [Concomitant]
  2. ALTEPLASE INJ [Concomitant]
  3. MAGNESIUM/SOY PROTEIN CHOLATE [Concomitant]
  4. SIMETHICONE [Concomitant]
     Active Substance: DIMETHICONE\SILICON DIOXIDE\SIMETHICONE
  5. DIOHENYL DRAMINE [Concomitant]
  6. DOCUSTAE SODIUM [Concomitant]
  7. MYCOPHENOLATE MOFETIL INJ [Concomitant]
  8. INSULIN [Concomitant]
     Active Substance: INSULIN NOS
  9. METOPROLOL TARTATE [Concomitant]
     Active Substance: METOPROLOL TARTRATE
  10. AMLODIPINE BESYLATE. [Concomitant]
     Active Substance: AMLODIPINE BESYLATE
  11. HEMORRHOIDAL [Concomitant]
     Active Substance: PHENYLEPHRINE HYDROCHLORIDE\WITCH HAZEL
  12. FOLIC ACID. [Concomitant]
     Active Substance: FOLIC ACID
  13. LAMOTRIGINE. [Concomitant]
     Active Substance: LAMOTRIGINE
  14. PREDNISONE. [Concomitant]
     Active Substance: PREDNISONE
  15. MIRTAZAPINE. [Concomitant]
     Active Substance: MIRTAZAPINE
  16. METOCLOPRAMIDE. [Concomitant]
     Active Substance: METOCLOPRAMIDE
  17. BRENTUXIMAB VEDOTIN [Suspect]
     Active Substance: BRENTUXIMAB VEDOTIN
     Indication: ACUTE GRAFT VERSUS HOST DISEASE
     Dosage: 0.6 MG/KG, Q2WEEKS
     Route: 042
     Dates: start: 20140514
  18. PANTOPRAZOLE INJ [Concomitant]
  19. POSACONAZOLE [Concomitant]
     Active Substance: POSACONAZOLE
  20. CYCLOSPORINE. [Concomitant]
     Active Substance: CYCLOSPORINE
  21. OLANZAPINE. [Concomitant]
     Active Substance: OLANZAPINE
  22. SENNA [Concomitant]
     Active Substance: SENNA LEAF\SENNOSIDES\SENNOSIDES A AND B
  23. LORAZEPAM. [Concomitant]
     Active Substance: LORAZEPAM
  24. FILGRASTIM SUBCUT [Concomitant]
  25. URSODIOL. [Concomitant]
     Active Substance: URSODIOL
  26. POTASSIUM CHLORIDE. [Concomitant]
     Active Substance: POTASSIUM CHLORIDE
  27. FOSCAMET SODIUM INJ [Concomitant]
  28. MEDROXYPROGESTERONE [Concomitant]
     Active Substance: MEDROXYPROGESTERONE
  29. MENTHOL/ZINC OIDE [Concomitant]
  30. MULTIVITAMIN [Concomitant]
     Active Substance: VITAMINS
  31. INSULIN SLIDING SCALE ASPART INJ [Concomitant]
  32. LEVALBUTEROL [Concomitant]
     Active Substance: LEVALBUTEROL

REACTIONS (4)
  - Abdominal pain [None]
  - Abdominal distension [None]
  - Ileus [None]
  - Nausea [None]

NARRATIVE: CASE EVENT DATE: 20140627
